FAERS Safety Report 6736607-6 (Version None)
Quarter: 2010Q2

REPORT INFORMATION
  Report Type: 
  Country: None (occurrence: None)
  Receive Date: 20100521
  Receipt Date: 20100507
  Transmission Date: 20101027
  Serious: Yes (Other)
  Sender: FDA-Public Use
  Company Number: DE-CEPHALON-2010002873

PATIENT
  Sex: Male
  Weight: 75 kg

DRUGS (4)
  1. TREANDA [Suspect]
     Indication: CHRONIC LYMPHOCYTIC LEUKAEMIA
     Dates: start: 20100419
  2. FORTECORTIN [Suspect]
     Indication: CHRONIC LYMPHOCYTIC LEUKAEMIA
     Dates: start: 20100419
  3. FORTECORTIN [Suspect]
     Dates: start: 20091110
  4. RITUXIMAB [Concomitant]
     Dates: start: 20100419

REACTIONS (5)
  - CIRCULATORY COLLAPSE [None]
  - DISORIENTATION [None]
  - DYSARTHRIA [None]
  - FATIGUE [None]
  - URINARY INCONTINENCE [None]
